FAERS Safety Report 15935103 (Version 2)
Quarter: 2019Q3

REPORT INFORMATION
  Report Type: Spontaneous
  Country: US (occurrence: US)
  Receive Date: 20190207
  Receipt Date: 20190820
  Transmission Date: 20191004
  Serious: Yes (Life-Threatening, Hospitalization, Other)
  Sender: FDA-Public Use
  Company Number: US-MYLANLABS-2019M1009885

PATIENT
  Sex: Female
  Weight: 52 kg

DRUGS (4)
  1. PROPRANOLOL [Suspect]
     Active Substance: PROPRANOLOL HYDROCHLORIDE
     Indication: PRODUCT USED FOR UNKNOWN INDICATION
     Dosage: UNK
     Route: 065
  2. BENEFIBER                          /00677201/ [Concomitant]
     Active Substance: ICODEXTRIN
  3. TYLENOL [Concomitant]
     Active Substance: ACETAMINOPHEN
     Indication: HEADACHE
  4. LORAZEPAM ACTAVIS [Concomitant]
     Active Substance: LORAZEPAM

REACTIONS (8)
  - Feeling abnormal [Unknown]
  - Panic attack [Unknown]
  - Blood pressure increased [Unknown]
  - Anxiety [Unknown]
  - Road traffic accident [Unknown]
  - Heart rate increased [Unknown]
  - Headache [Unknown]
  - Heart rate abnormal [Unknown]
